FAERS Safety Report 6871063-9 (Version None)
Quarter: 2010Q3

REPORT INFORMATION
  Report Type: 
  Country: None (occurrence: None)
  Receive Date: 20100723
  Receipt Date: 20100719
  Transmission Date: 20110219
  Serious: Yes (Other)
  Sender: FDA-Public Use
  Company Number: RS-ROXANE LABORATORIES, INC.-2010-RO-00871RO

PATIENT
  Age: 45 Year
  Sex: Female

DRUGS (3)
  1. DIAZEPAM [Suspect]
  2. TOPIRAMATE [Suspect]
     Indication: ALCOHOL WITHDRAWAL SYNDROME
     Dosage: 100 MG
  3. TOPIRAMATE [Suspect]
     Indication: WITHDRAWAL SYNDROME

REACTIONS (5)
  - BLOOD PRESSURE DECREASED [None]
  - CONTUSION [None]
  - DIZZINESS [None]
  - HEART RATE DECREASED [None]
  - WITHDRAWAL SYNDROME [None]
